FAERS Safety Report 24538828 (Version 1)
Quarter: 2024Q4

REPORT INFORMATION
  Report Type: Report from Study
  Country: DE (occurrence: DE)
  Receive Date: 20241023
  Receipt Date: 20241023
  Transmission Date: 20250115
  Serious: Yes (Other)
  Sender: AUROBINDO
  Company Number: DE-AUROBINDO-AUR-APL-2024-051356

PATIENT
  Age: 10 Month
  Sex: Male
  Weight: 3 kg

DRUGS (6)
  1. LEVETIRACETAM [Suspect]
     Active Substance: LEVETIRACETAM
     Indication: Seizure
     Dosage: 30 MG/KG/D
     Route: 065
  2. NIFEDIPINE [Suspect]
     Active Substance: NIFEDIPINE
     Indication: Seizure
     Dosage: 0.5 MG/KG/D DIVIDED INTO 2 DOSES EVERY 12HOURS WHICH WAS GRADUALLY INCREASED TO 3 MG/KG/D
     Route: 048
  3. ISRADIPINE [Suspect]
     Active Substance: ISRADIPINE
     Indication: Seizure
     Dosage: AT THE AGE OF 38 MONTHS, HE STARTED RECEIVING ISRADIPINE 0.02 MG/KG/D IN 2 DOSES EVERY 12 HOURS THRO
     Route: 065
  4. DIAZOXIDE [Suspect]
     Active Substance: DIAZOXIDE
     Indication: Product used for unknown indication
     Dosage: UNK
     Route: 065
  5. LANREOTIDE [Concomitant]
     Active Substance: LANREOTIDE
     Indication: Product used for unknown indication
     Dosage: UNK
     Route: 065
  6. OCTREOTIDE [Concomitant]
     Active Substance: OCTREOTIDE
     Indication: Product used for unknown indication
     Dosage: UNK
     Route: 065

REACTIONS (1)
  - Drug ineffective [Unknown]
